FAERS Safety Report 21656334 (Version 1)
Quarter: 2022Q4

REPORT INFORMATION
  Report Type: Spontaneous
  Country: US (occurrence: US)
  Receive Date: 20221129
  Receipt Date: 20221129
  Transmission Date: 20230113
  Serious: No
  Sender: FDA-Public Use
  Company Number: US-PFIZER INC-PV202200111487

PATIENT
  Age: 71 Year
  Sex: Female

DRUGS (5)
  1. IBRANCE [Suspect]
     Active Substance: PALBOCICLIB
     Dosage: 75 MG, CYCLIC, X 21 DAYS
     Route: 048
     Dates: start: 20210804
  2. ANASTROZOLE [Concomitant]
     Active Substance: ANASTROZOLE
  3. PROCHLORPERAZINE [Concomitant]
     Active Substance: PROCHLORPERAZINE
  4. ZOFRAN [Concomitant]
     Active Substance: ONDANSETRON HYDROCHLORIDE
  5. OMEPRAZOLE [Concomitant]
     Active Substance: OMEPRAZOLE

REACTIONS (1)
  - Sinusitis [Unknown]
